FAERS Safety Report 5905107-5 (Version None)
Quarter: 2008Q4

REPORT INFORMATION
  Report Type: 
  Country: None (occurrence: None)
  Receive Date: 20081001
  Receipt Date: 20080903
  Transmission Date: 20090506
  Serious: No
  Sender: FDA-Public Use
  Company Number: GB-PFIZER INC-2008070569

PATIENT
  Age: 14 Year
  Sex: Male
  Weight: 34 kg

DRUGS (10)
  1. HYDROCORTISONE SODIUM SUCCINATE [Suspect]
  2. AZATHIOPRINE [Suspect]
     Indication: CROHN'S DISEASE
     Route: 048
  3. INFLIXIMAB [Suspect]
     Indication: CROHN'S DISEASE
     Route: 042
     Dates: end: 20070312
  4. HYDROCORTISONE [Concomitant]
  5. MEBEVERINE [Concomitant]
  6. OMEPRAZOLE [Concomitant]
  7. GENTAMYCIN SULFATE [Concomitant]
  8. POTASSIUM CHLORIDE [Concomitant]
  9. PREDNISOLONE [Concomitant]
  10. PYRIDOXINE HYDROCHLORIDE [Concomitant]

REACTIONS (1)
  - NO ADVERSE EVENT [None]
